FAERS Safety Report 7735902-1 (Version None)
Quarter: 2011Q3

REPORT INFORMATION
  Report Type: 
  Country: None (occurrence: None)
  Receive Date: 20110908
  Receipt Date: 20090330
  Transmission Date: 20111222
  Serious: No
  Sender: FDA-Public Use
  Company Number: 2009BI009928

PATIENT
  Sex: Female

DRUGS (2)
  1. TYSABRI [Suspect]
     Indication: MULTIPLE SCLEROSIS
     Route: 042
     Dates: start: 20070302, end: 20090227
  2. TYSABRI [Suspect]
     Route: 042
     Dates: start: 20090424

REACTIONS (11)
  - MUSCLE SPASMS [None]
  - ASTHENIA [None]
  - BALANCE DISORDER [None]
  - FALL [None]
  - RETCHING [None]
  - NAUSEA [None]
  - BAND SENSATION [None]
  - DYSPNOEA [None]
  - GAIT DISTURBANCE [None]
  - HAND FRACTURE [None]
  - FATIGUE [None]
